FAERS Safety Report 5080088-8 (Version None)
Quarter: 2006Q3

REPORT INFORMATION
  Report Type: 
  Country: None (occurrence: None)
  Receive Date: 20060809
  Receipt Date: 20060807
  Transmission Date: 20061208
  Serious: Yes (Death)
  Sender: FDA-Public Use
  Company Number: TCI2006A02571

PATIENT
  Age: 74 Year
  Sex: Female

DRUGS (9)
  1. LANSOPRAZOLE [Suspect]
     Indication: GASTRIC ULCER
     Dosage: 15 MG (15 MG, 1 IN 1 D) PER ORAL
     Route: 048
     Dates: start: 20060531, end: 20060618
  2. SELBEX                           (TEPRENONE) (FINE GRANULES) [Concomitant]
  3. ULCERLMIN                      (SUCRALFATE) (PREPARATION FOR ORAL USE [Concomitant]
  4. MUCODYNE                   (CARBOCISTEINE) (PREPARATION FOR ORAL USE ( [Concomitant]
     Route: 048
  5. LANIRAPID        (METILDIGOXIN) (TABLETS) [Concomitant]
  6. MUCOSOLVAN          (AMBROXOL HYDROCHLORIDE) (TABLETS) [Concomitant]
  7. LASIX [Concomitant]
  8. ALDACTONE [Concomitant]
  9. HALFDIGOXIN (DIGOXIN) (TABLETS) [Concomitant]

REACTIONS (6)
  - CARDIAC ARREST [None]
  - DISSEMINATED INTRAVASCULAR COAGULATION [None]
  - MULTI-ORGAN FAILURE [None]
  - OLIGURIA [None]
  - PYREXIA [None]
  - TOXIC EPIDERMAL NECROLYSIS [None]
